FAERS Safety Report 5342761-3 (Version None)
Quarter: 2007Q2

REPORT INFORMATION
  Report Type: 
  Country: None (occurrence: None)
  Receive Date: 20070601
  Receipt Date: 20070524
  Transmission Date: 20071010
  Serious: Yes (Other)
  Sender: FDA-Public Use
  Company Number: GB-ABBOTT-07P-167-0369505-00

PATIENT
  Age: 34 Year
  Sex: Female

DRUGS (1)
  1. EPILIM [Suspect]
     Indication: EPILEPSY
     Route: 048
     Dates: start: 19840101

REACTIONS (1)
  - STOMACH DISCOMFORT [None]
